FAERS Safety Report 8461580-2 (Version None)
Quarter: 2012Q2

REPORT INFORMATION
  Report Type: 
  Country: None (occurrence: None)
  Receive Date: 20120625
  Receipt Date: 20120619
  Transmission Date: 20120825
  Serious: Yes (Hospitalization)
  Sender: FDA-Public Use
  Company Number: PHEH2012US012356

PATIENT
  Sex: Male

DRUGS (5)
  1. GLIPIZIDE [Concomitant]
     Indication: DIABETES MELLITUS
  2. TROSPIUM CHLORIDE [Concomitant]
  3. PRILOSEC [Concomitant]
     Indication: GASTROOESOPHAGEAL REFLUX DISEASE
  4. EXJADE [Suspect]
     Indication: HAEMOCHROMATOSIS
     Dosage: UNK UKN, UNK
     Dates: start: 20120412, end: 20120418
  5. FLOMAX [Concomitant]
     Indication: PROSTATE CANCER

REACTIONS (1)
  - PNEUMONIA [None]
